FAERS Safety Report 25353794 (Version 1)
Quarter: 2025Q2

REPORT INFORMATION
  Report Type: Spontaneous
  Country: FR (occurrence: FR)
  Receive Date: 20250523
  Receipt Date: 20250523
  Transmission Date: 20250716
  Serious: Yes (Other)
  Sender: MYLAN
  Company Number: None

PATIENT
  Age: 63 Year
  Sex: Male
  Weight: 61 kg

DRUGS (36)
  1. ATORVASTATIN [Suspect]
     Active Substance: ATORVASTATIN
     Indication: Acute coronary syndrome
     Dosage: 40 MILLIGRAM, QD
     Dates: end: 20250417
  2. ATORVASTATIN [Suspect]
     Active Substance: ATORVASTATIN
     Dosage: 40 MILLIGRAM, QD
     Route: 048
     Dates: end: 20250417
  3. ATORVASTATIN [Suspect]
     Active Substance: ATORVASTATIN
     Dosage: 40 MILLIGRAM, QD
     Route: 048
     Dates: end: 20250417
  4. ATORVASTATIN [Suspect]
     Active Substance: ATORVASTATIN
     Dosage: 40 MILLIGRAM, QD
     Dates: end: 20250417
  5. PHENOBARBITAL [Suspect]
     Active Substance: PHENOBARBITAL
     Indication: Status epilepticus
     Dosage: 200 MILLIGRAM, QD
     Dates: start: 20250414, end: 20250417
  6. PHENOBARBITAL [Suspect]
     Active Substance: PHENOBARBITAL
     Dosage: 200 MILLIGRAM, QD
     Route: 048
     Dates: start: 20250414, end: 20250417
  7. PHENOBARBITAL [Suspect]
     Active Substance: PHENOBARBITAL
     Dosage: 200 MILLIGRAM, QD
     Route: 048
     Dates: start: 20250414, end: 20250417
  8. PHENOBARBITAL [Suspect]
     Active Substance: PHENOBARBITAL
     Dosage: 200 MILLIGRAM, QD
     Dates: start: 20250414, end: 20250417
  9. FOSPHENYTOIN SODIUM [Suspect]
     Active Substance: FOSPHENYTOIN SODIUM
     Indication: Status epilepticus
     Dates: start: 20250414, end: 20250417
  10. FOSPHENYTOIN SODIUM [Suspect]
     Active Substance: FOSPHENYTOIN SODIUM
     Route: 042
     Dates: start: 20250414, end: 20250417
  11. FOSPHENYTOIN SODIUM [Suspect]
     Active Substance: FOSPHENYTOIN SODIUM
     Route: 042
     Dates: start: 20250414, end: 20250417
  12. FOSPHENYTOIN SODIUM [Suspect]
     Active Substance: FOSPHENYTOIN SODIUM
     Dates: start: 20250414, end: 20250417
  13. KEPPRA [Concomitant]
     Active Substance: LEVETIRACETAM
  14. KEPPRA [Concomitant]
     Active Substance: LEVETIRACETAM
     Route: 065
  15. KEPPRA [Concomitant]
     Active Substance: LEVETIRACETAM
     Route: 065
  16. KEPPRA [Concomitant]
     Active Substance: LEVETIRACETAM
  17. VIMPAT [Concomitant]
     Active Substance: LACOSAMIDE
  18. VIMPAT [Concomitant]
     Active Substance: LACOSAMIDE
     Route: 065
  19. VIMPAT [Concomitant]
     Active Substance: LACOSAMIDE
     Route: 065
  20. VIMPAT [Concomitant]
     Active Substance: LACOSAMIDE
  21. LAMICTAL [Concomitant]
     Active Substance: LAMOTRIGINE
  22. LAMICTAL [Concomitant]
     Active Substance: LAMOTRIGINE
     Route: 065
  23. LAMICTAL [Concomitant]
     Active Substance: LAMOTRIGINE
     Route: 065
  24. LAMICTAL [Concomitant]
     Active Substance: LAMOTRIGINE
  25. KARDEGIC [Concomitant]
     Active Substance: ASPIRIN DL-LYSINE
  26. KARDEGIC [Concomitant]
     Active Substance: ASPIRIN DL-LYSINE
     Route: 065
  27. KARDEGIC [Concomitant]
     Active Substance: ASPIRIN DL-LYSINE
     Route: 065
  28. KARDEGIC [Concomitant]
     Active Substance: ASPIRIN DL-LYSINE
  29. DULOXETINE HYDROCHLORIDE [Concomitant]
     Active Substance: DULOXETINE HYDROCHLORIDE
  30. DULOXETINE HYDROCHLORIDE [Concomitant]
     Active Substance: DULOXETINE HYDROCHLORIDE
     Route: 065
  31. DULOXETINE HYDROCHLORIDE [Concomitant]
     Active Substance: DULOXETINE HYDROCHLORIDE
     Route: 065
  32. DULOXETINE HYDROCHLORIDE [Concomitant]
     Active Substance: DULOXETINE HYDROCHLORIDE
  33. PANTOPRAZOLE [Concomitant]
     Active Substance: PANTOPRAZOLE
  34. PANTOPRAZOLE [Concomitant]
     Active Substance: PANTOPRAZOLE
     Route: 065
  35. PANTOPRAZOLE [Concomitant]
     Active Substance: PANTOPRAZOLE
     Route: 065
  36. PANTOPRAZOLE [Concomitant]
     Active Substance: PANTOPRAZOLE

REACTIONS (1)
  - Hepatic cytolysis [Recovering/Resolving]

NARRATIVE: CASE EVENT DATE: 20250415
